FAERS Safety Report 10724738 (Version 1)
Quarter: 2015Q1

REPORT INFORMATION
  Report Type: Report from Study
  Country: DE (occurrence: DE)
  Receive Date: 20150120
  Receipt Date: 20150120
  Transmission Date: 20150721
  Serious: Yes (Other)
  Sender: FDA-Public Use
  Company Number: DE-PFIZER INC-2015019158

PATIENT
  Age: 64 Year
  Sex: Female
  Weight: 93 kg

DRUGS (8)
  1. MARCUMAR [Concomitant]
     Active Substance: PHENPROCOUMON
     Dosage: UNK
     Dates: start: 201312
  2. ALLOPURINOL. [Concomitant]
     Active Substance: ALLOPURINOL
     Dosage: 300 MG, UNK
     Dates: start: 201312
  3. METOPROLOL [Concomitant]
     Active Substance: METOPROLOL
     Dosage: 195 MG, UNK
     Dates: start: 201312
  4. RAMIPRIL. [Concomitant]
     Active Substance: RAMIPRIL
     Dosage: 5 MG, UNK
     Dates: start: 201312
  5. EXEMESTANE. [Suspect]
     Active Substance: EXEMESTANE
     Indication: BREAST CANCER
     Dosage: 25 MG, DAILY
     Route: 048
     Dates: start: 20131218, end: 20141222
  6. AFINITOR [Suspect]
     Active Substance: EVEROLIMUS
     Indication: BREAST CANCER
     Dosage: 10 MG, DAILY
     Route: 048
     Dates: start: 20131218, end: 20141222
  7. LYRICA [Concomitant]
     Active Substance: PREGABALIN
     Dosage: 175 MG, UNK
     Dates: start: 201312
  8. DUROGESIC [Concomitant]
     Active Substance: FENTANYL
     Dosage: 7 UG/24H
     Dates: start: 201312

REACTIONS (1)
  - Abscess limb [Recovered/Resolved]

NARRATIVE: CASE EVENT DATE: 20141207
